FAERS Safety Report 17164073 (Version 1)
Quarter: 2019Q4

REPORT INFORMATION
  Report Type: Report from Study
  Country: US (occurrence: AR)
  Receive Date: 20191217
  Receipt Date: 20191217
  Transmission Date: 20200122
  Serious: Yes (Hospitalization, Other)
  Sender: FDA-Public Use
  Company Number: US-SUNOVION-2019SUN005449

PATIENT
  Sex: Female

DRUGS (4)
  1. INDACATEROL [Suspect]
     Active Substance: INDACATEROL
     Dosage: 2 DF, QD
     Route: 065
     Dates: start: 201806
  2. LOSARTAN. [Concomitant]
     Active Substance: LOSARTAN
     Indication: PROPHYLAXIS
     Dosage: HALF TABLET
     Route: 065
  3. INDACATEROL [Suspect]
     Active Substance: INDACATEROL
     Indication: CHRONIC OBSTRUCTIVE PULMONARY DISEASE
     Dosage: 2 DF, QD
     Route: 065
     Dates: start: 201703, end: 201803
  4. ATORVASTATIN [Concomitant]
     Active Substance: ATORVASTATIN
     Indication: PRODUCT USED FOR UNKNOWN INDICATION
     Route: 065

REACTIONS (6)
  - Choking [Unknown]
  - White blood cell count increased [Recovered/Resolved]
  - Pneumonia [Recovered/Resolved]
  - Weight increased [Unknown]
  - Emphysema [Recovered/Resolved]
  - Nasopharyngitis [Unknown]

NARRATIVE: CASE EVENT DATE: 201806
